FAERS Safety Report 24012614 (Version 1)
Quarter: 2024Q2

REPORT INFORMATION
  Report Type: Report from Study
  Country: US (occurrence: US)
  Receive Date: 20240626
  Receipt Date: 20240626
  Transmission Date: 20240715
  Serious: Yes (Hospitalization, Other)
  Sender: FDA-Public Use
  Company Number: US-ABBVIE-5734996

PATIENT
  Age: 79 Year
  Sex: Male

DRUGS (1)
  1. HUMIRA [Suspect]
     Active Substance: ADALIMUMAB
     Indication: Product used for unknown indication
     Dosage: FORM STRENGTH: 40 MILLIGRAM, CITRATE FREE
     Route: 058
     Dates: start: 20200101

REACTIONS (6)
  - Lumbar vertebral fracture [Recovered/Resolved]
  - Diarrhoea [Recovered/Resolved]
  - Infection [Recovering/Resolving]
  - Fall [Recovering/Resolving]
  - Pain [Unknown]
  - Chest pain [Unknown]

NARRATIVE: CASE EVENT DATE: 20240401
